FAERS Safety Report 9332838 (Version 1)
Quarter: 2013Q2

REPORT INFORMATION
  Report Type: Spontaneous
  Country: US (occurrence: US)
  Receive Date: 20130606
  Receipt Date: 20130606
  Transmission Date: 20140414
  Serious: Yes (Hospitalization)
  Sender: FDA-Public Use
  Company Number: US-PFIZER INC-2013169128

PATIENT
  Age: 65 Year
  Sex: Female

DRUGS (2)
  1. SKELAXIN [Suspect]
     Dosage: UNK
  2. WELCHOL [Concomitant]
     Dosage: 6.25 MG, 2X/DAY

REACTIONS (1)
  - Cardiac disorder [Unknown]
